FAERS Safety Report 7326071-0 (Version None)
Quarter: 2011Q1

REPORT INFORMATION
  Report Type: 
  Country: None (occurrence: None)
  Receive Date: 20110302
  Receipt Date: 20110221
  Transmission Date: 20110831
  Serious: Yes (Death)
  Sender: FDA-Public Use
  Company Number: JP-ROCHE-663099

PATIENT
  Age: 12 Year
  Sex: Male

DRUGS (8)
  1. CELLCEPT [Suspect]
     Indication: PROPHYLAXIS AGAINST GRAFT VERSUS HOST DISEASE
     Route: 048
     Dates: start: 20080201
  2. METHOTREXATE [Concomitant]
     Dates: start: 20080101
  3. ENDOXAN [Concomitant]
     Dates: start: 20080101, end: 20080101
  4. PREDNISOLONE [Concomitant]
     Dates: start: 20050101
  5. ANABOLIC STEROIDS [Concomitant]
     Dates: start: 20050101
  6. FLUDARA [Concomitant]
     Dates: start: 20080101, end: 20080101
  7. PROGRAF [Concomitant]
     Route: 048
     Dates: start: 20080101
  8. NON-SPECIFIC DRUG NOS [Concomitant]
     Dosage: DRUG: OTHER BIOLOGICAL PREPARATIONS()
     Dates: start: 20080101, end: 20080101

REACTIONS (1)
  - PRECURSOR T-LYMPHOBLASTIC LYMPHOMA/LEUKAEMIA [None]
